FAERS Safety Report 6095167-6 (Version None)
Quarter: 2009Q1

REPORT INFORMATION
  Report Type: 
  Country: None (occurrence: None)
  Receive Date: 20090227
  Receipt Date: 20080204
  Transmission Date: 20090719
  Serious: No
  Sender: FDA-Public Use
  Company Number: A0707160A

PATIENT
  Age: 49 Year
  Sex: Female

DRUGS (2)
  1. LAMICTAL [Suspect]
     Indication: BIPOLAR DISORDER
     Dosage: 25MG PER DAY
     Route: 048
     Dates: start: 20080120, end: 20080129
  2. NO CONCURRENT MEDICATION [Concomitant]

REACTIONS (7)
  - COUGH [None]
  - CRYING [None]
  - HEADACHE [None]
  - LYMPHADENOPATHY [None]
  - ORAL HERPES [None]
  - PAIN [None]
  - PYREXIA [None]
